FAERS Safety Report 13027539 (Version 1)
Quarter: 2016Q4

REPORT INFORMATION
  Report Type: Spontaneous
  Country: US (occurrence: US)
  Receive Date: 20161214
  Receipt Date: 20161214
  Transmission Date: 20170207
  Serious: Yes (Hospitalization)
  Sender: FDA-Public Use
  Company Number: US-JNJFOC-20161206384

PATIENT
  Age: 53 Year
  Sex: Male
  Weight: 136.08 kg

DRUGS (1)
  1. XARELTO [Suspect]
     Active Substance: RIVAROXABAN
     Indication: THROMBOSIS
     Route: 048
     Dates: start: 201603, end: 201610

REACTIONS (3)
  - Pain in extremity [Unknown]
  - Device breakage [Recovered/Resolved]
  - Heart injury [Recovered/Resolved]

NARRATIVE: CASE EVENT DATE: 2016
